FAERS Safety Report 14591997 (Version 1)
Quarter: 2018Q1

REPORT INFORMATION
  Report Type: Spontaneous
  Country: DE (occurrence: DE)
  Receive Date: 20180302
  Receipt Date: 20180302
  Transmission Date: 20180509
  Serious: Yes (Life-Threatening)
  Sender: FDA-Public Use
  Company Number: DE-009507513-1802DEU010896

PATIENT
  Age: 68 Year
  Sex: Male
  Weight: 72 kg

DRUGS (10)
  1. MADOPAR [Suspect]
     Active Substance: BENSERAZIDE HYDROCHLORIDE\LEVODOPA
     Dosage: 1 TBL PER DAY
     Route: 048
  2. APOMORPHINE HYDROCHLORIDE [Suspect]
     Active Substance: APOMORPHINE HYDROCHLORIDE
     Indication: PARKINSON^S DISEASE
     Dosage: 148.75 MG FROM 06.00 TO 22.00 HRS.
     Route: 058
     Dates: start: 20170308
  3. LYRICA [Concomitant]
     Active Substance: PREGABALIN
     Dosage: 2X1TBL PER DAY
     Route: 048
  4. AMLODIPINE [Concomitant]
     Active Substance: AMLODIPINE BESYLATE
     Dosage: 1 TBL PER DAY
     Route: 048
  5. XADAGO [Concomitant]
     Active Substance: SAFINAMIDE MESYLATE
     Dosage: 1 TBL PER DAY
     Route: 048
  6. NACOM 100 MG/25 MG TABLETTEN [Suspect]
     Active Substance: CARBIDOPA\LEVODOPA
     Dosage: 1TBL PER DAY
     Route: 048
  7. STALEVO [Suspect]
     Active Substance: CARBIDOPA\ENTACAPONE\LEVODOPA
     Dosage: 4X1TBL PER DAY; STRENGTH: 50/12.5/200MG
     Route: 048
  8. VALSARTAN. [Concomitant]
     Active Substance: VALSARTAN
     Dosage: 1 TBL PER DAY
     Route: 048
  9. PRAMIPEXOLE. [Concomitant]
     Active Substance: PRAMIPEXOLE
     Dosage: 1 TBL PER DAY (0.52 MG)
     Route: 048
  10. SIMVAHEXAL [Concomitant]
     Active Substance: SIMVASTATIN
     Dosage: 1 TBL PER DAY
     Route: 048

REACTIONS (6)
  - Confusional state [Not Recovered/Not Resolved]
  - Psychotic disorder [Not Recovered/Not Resolved]
  - Hypersexuality [Not Recovered/Not Resolved]
  - Hallucination [Not Recovered/Not Resolved]
  - Overdose [Not Recovered/Not Resolved]
  - Suicide attempt [Not Recovered/Not Resolved]

NARRATIVE: CASE EVENT DATE: 20170314
